FAERS Safety Report 17051551 (Version 2)
Quarter: 2020Q1

REPORT INFORMATION
  Report Type: Report from Study
  Country: JP (occurrence: JP)
  Receive Date: 20191120
  Receipt Date: 20200203
  Transmission Date: 20200409
  Serious: Yes (Other)
  Sender: FDA-Public Use
  Company Number: JP-SAKK-2019SA059983AA

PATIENT
  Age: 64 Year
  Sex: Male
  Weight: 63.8 kg

DRUGS (15)
  1. CALCIUM FOLINATE [Suspect]
     Active Substance: LEUCOVORIN CALCIUM
     Indication: RECTAL CANCER
     Dosage: 345 MG/M2, QOW
     Route: 065
     Dates: start: 20180824, end: 20181019
  2. CALCIUM FOLINATE [Suspect]
     Active Substance: LEUCOVORIN CALCIUM
     Dosage: 345 MG/M2, QOW
     Route: 065
     Dates: start: 20181130, end: 20190111
  3. AFLIBERCEPT [Suspect]
     Active Substance: AFLIBERCEPT
     Dosage: 3.89 MG/KG, 1X
     Route: 041
     Dates: start: 20181130, end: 20181130
  4. FLUOROURACIL. [Suspect]
     Active Substance: FLUOROURACIL
     Dosage: 690 MG/M2, QOW
     Route: 040
     Dates: start: 20181130, end: 20190111
  5. AFLIBERCEPT [Suspect]
     Active Substance: AFLIBERCEPT
     Dosage: 3.89 MG/KG, 1X
     Route: 041
     Dates: start: 20181109, end: 20181109
  6. FLUOROURACIL. [Suspect]
     Active Substance: FLUOROURACIL
     Dosage: 4140 MG/M2, QOW
     Route: 041
     Dates: start: 20180824, end: 20181019
  7. FLUOROURACIL. [Suspect]
     Active Substance: FLUOROURACIL
     Dosage: 4140 MG/M2, 1X
     Route: 041
     Dates: start: 20181130, end: 20190111
  8. CALCIUM FOLINATE [Suspect]
     Active Substance: LEUCOVORIN CALCIUM
     Dosage: 345 MG/M2, 1X
     Route: 065
     Dates: start: 20181109, end: 20181109
  9. AFLIBERCEPT [Suspect]
     Active Substance: AFLIBERCEPT
     Indication: RECTAL CANCER
     Dosage: 3.89 MG/KG, QOW
     Route: 041
     Dates: start: 20180824, end: 20181019
  10. FLUOROURACIL. [Suspect]
     Active Substance: FLUOROURACIL
     Indication: RECTAL CANCER
     Dosage: 690 MG/M2, QOW
     Route: 040
     Dates: start: 20180824, end: 20181019
  11. FLUOROURACIL. [Suspect]
     Active Substance: FLUOROURACIL
     Dosage: 690 MG/M2, 1X
     Route: 040
     Dates: start: 20181109, end: 20181109
  12. IRINOTECAN [Suspect]
     Active Substance: IRINOTECAN
     Indication: RECTAL CANCER
     Dosage: 259 MG/M2, QOW
     Route: 065
     Dates: start: 20180824, end: 20181019
  13. FLUOROURACIL. [Suspect]
     Active Substance: FLUOROURACIL
     Dosage: 4140 MG/M2, 1X
     Route: 041
     Dates: start: 20181109, end: 20181109
  14. IRINOTECAN [Suspect]
     Active Substance: IRINOTECAN
     Dosage: 259 MG/M2, 1X
     Route: 065
     Dates: start: 20181109, end: 20181109
  15. IRINOTECAN [Suspect]
     Active Substance: IRINOTECAN
     Dosage: 259 MG/M2, QOW
     Route: 065
     Dates: start: 20181130, end: 20190111

REACTIONS (6)
  - Protein urine [Recovered/Resolved]
  - Platelet count decreased [Recovered/Resolved]
  - Stomatitis [Recovered/Resolved]
  - Epistaxis [Recovered/Resolved]
  - Skin disorder [Recovered/Resolved]
  - Neuropathy peripheral [Recovered/Resolved]

NARRATIVE: CASE EVENT DATE: 20180907
